FAERS Safety Report 6611993-6 (Version None)
Quarter: 2010Q1

REPORT INFORMATION
  Report Type: 
  Country: None (occurrence: None)
  Receive Date: 20100303
  Receipt Date: 20100223
  Transmission Date: 20100710
  Serious: Yes (Hospitalization)
  Sender: FDA-Public Use
  Company Number: GXKR2010GT01928

PATIENT
  Sex: Male
  Weight: 117 kg

DRUGS (2)
  1. CURAM (NGX) [Suspect]
     Indication: CELLULITIS
     Dosage: 625 MG, TID
     Route: 048
     Dates: start: 20100209, end: 20100217
  2. HUMULIN 70/30 [Concomitant]
     Indication: TYPE 2 DIABETES MELLITUS
     Route: 065

REACTIONS (1)
  - PALPITATIONS [None]
